FAERS Safety Report 7477773-7 (Version None)
Quarter: 2011Q2

REPORT INFORMATION
  Report Type: 
  Country: None (occurrence: None)
  Receive Date: 20110513
  Receipt Date: 20110214
  Transmission Date: 20111010
  Serious: No
  Sender: FDA-Public Use
  Company Number: A0913437A

PATIENT
  Age: 61 Year
  Sex: Female

DRUGS (11)
  1. TREXIMET [Suspect]
     Indication: MIGRAINE
     Dosage: 85MG AS REQUIRED
     Route: 048
     Dates: start: 20101001
  2. VITAMIN B COMPLEX CAP [Concomitant]
  3. BONIVA [Concomitant]
  4. LIPITOR [Concomitant]
  5. ADVAIR DISKUS 100/50 [Concomitant]
  6. MULTI-VITAMIN [Concomitant]
  7. HYDROCHLOROTHIAZIDE [Concomitant]
  8. PROZAC [Concomitant]
  9. OMEPRAZOLE [Concomitant]
  10. SPIRIVA [Concomitant]
  11. ASPIRIN [Concomitant]

REACTIONS (1)
  - FEELING ABNORMAL [None]
